FAERS Safety Report 13993108 (Version 2)
Quarter: 2017Q4

REPORT INFORMATION
  Report Type: Spontaneous
  Country: IT (occurrence: IT)
  Receive Date: 20170920
  Receipt Date: 20171108
  Transmission Date: 20180321
  Serious: Yes (Hospitalization)
  Sender: FDA-Public Use
  Company Number: IT-SA-2017SA171520

PATIENT
  Age: 85 Year
  Sex: Male

DRUGS (5)
  1. SOLOSA [Suspect]
     Active Substance: GLIMEPIRIDE
     Indication: DIABETES MELLITUS
     Route: 048
     Dates: end: 20170629
  2. COMPETACT [Suspect]
     Active Substance: METFORMIN HYDROCHLORIDE\PIOGLITAZONE HYDROCHLORIDE
     Indication: DIABETES MELLITUS
     Route: 048
     Dates: end: 20170629
  3. BICALUTAMIDE. [Concomitant]
     Active Substance: BICALUTAMIDE
     Route: 048
  4. COTAREG [Concomitant]
     Active Substance: HYDROCHLOROTHIAZIDE\VALSARTAN
     Dosage: DOSE:1 UNIT(S)
     Route: 048
  5. CARDIOASPIRIN [Concomitant]
     Active Substance: ASPIRIN
     Route: 048

REACTIONS (4)
  - Hypoglycaemia [Recovered/Resolved]
  - Confusional state [Recovered/Resolved]
  - Product use issue [Unknown]
  - Agitation [Recovered/Resolved]

NARRATIVE: CASE EVENT DATE: 20170629
